FAERS Safety Report 9454751 (Version 5)
Quarter: 2013Q4

REPORT INFORMATION
  Report Type: Report from Study
  Country: US (occurrence: US)
  Receive Date: 20130812
  Receipt Date: 20131120
  Transmission Date: 20140711
  Serious: Yes (Hospitalization)
  Sender: FDA-Public Use
  Company Number: US-BRISTOL-MYERS SQUIBB COMPANY-19166974

PATIENT
  Age: 49 Year
  Sex: Male
  Weight: 84.1 kg

DRUGS (12)
  1. BELATACEPT [Suspect]
     Indication: RENAL TRANSPLANT
     Dosage: 1DF= 10 MG/KG (4/10/13;04/13/13; 27JUL2013:5MG/KG- LOT#3A77180; EXP DATE: SEP2015)
     Route: 042
     Dates: start: 20130410
  2. CELLCEPT [Suspect]
     Indication: RENAL TRANSPLANT
     Route: 048
     Dates: start: 20130409
  3. BACTRIM [Concomitant]
     Dosage: 1DF:400-80MG TABLET EVERY MWF
     Route: 048
  4. NYSTATIN [Concomitant]
     Route: 048
  5. VALCYTE [Concomitant]
     Route: 048
  6. PEPCID [Concomitant]
     Route: 048
  7. VITAMIN B12 [Concomitant]
     Dosage: 1DF: LOO0MCG/ML Q30D IJ
  8. LIPITOR [Concomitant]
     Route: 048
  9. FLORINEF [Concomitant]
     Route: 048
  10. PROAMATINE [Concomitant]
     Route: 048
  11. NOVOLOG [Concomitant]
     Dosage: FLEXPEN ?1DF:UP TO 75UNITS/DAY
     Route: 058
  12. LEVEMIR [Concomitant]
     Dosage: 1DF:30 UNITS NOS
     Route: 058

REACTIONS (3)
  - Orthostatic hypotension [Unknown]
  - Anaemia [Unknown]
  - Parvovirus infection [Recovered/Resolved]
